FAERS Safety Report 13102735 (Version 2)
Quarter: 2017Q1

REPORT INFORMATION
  Report Type: Spontaneous
  Country: US (occurrence: US)
  Receive Date: 20170110
  Receipt Date: 20170215
  Transmission Date: 20170428
  Serious: No
  Sender: FDA-Public Use
  Company Number: US-ELI_LILLY_AND_COMPANY-US201701000161

PATIENT
  Age: 27 Year
  Sex: Female

DRUGS (8)
  1. PERCOCET                           /00446701/ [Concomitant]
     Active Substance: ACETAMINOPHEN\OXYCODONE HYDROCHLORIDE\OXYCODONE TEREPHTHALATE
  2. LACTULOSE. [Concomitant]
     Active Substance: LACTULOSE
  3. CYRAMZA [Suspect]
     Active Substance: RAMUCIRUMAB
     Indication: GASTRIC CANCER
     Dosage: 440 MG, UNKNOWN
     Route: 065
     Dates: start: 20161227, end: 20161227
  4. PROTONIX                           /00661201/ [Concomitant]
     Active Substance: OMEPRAZOLE
  5. MORPHINE [Concomitant]
     Active Substance: MORPHINE
  6. XANAX [Concomitant]
     Active Substance: ALPRAZOLAM
  7. COLACE [Concomitant]
     Active Substance: DOCUSATE SODIUM
  8. COMPAZINE                          /00013302/ [Concomitant]
     Active Substance: PROCHLORPERAZINE EDISYLATE

REACTIONS (2)
  - Chest pain [Unknown]
  - Pain in extremity [Unknown]

NARRATIVE: CASE EVENT DATE: 20161229
